FAERS Safety Report 12217636 (Version 2)
Quarter: 2016Q3

REPORT INFORMATION
  Report Type: Report from Study
  Country: DE (occurrence: DE)
  Receive Date: 20160329
  Receipt Date: 20160722
  Transmission Date: 20161109
  Serious: Yes (Other)
  Sender: FDA-Public Use
  Company Number: DE-ROCHE-1732943

PATIENT
  Age: 68 Year
  Sex: Female
  Weight: 84.08 kg

DRUGS (5)
  1. RANIBIZUMAB [Suspect]
     Active Substance: RANIBIZUMAB
     Route: 050
     Dates: start: 20160404
  2. RANIBIZUMAB [Suspect]
     Active Substance: RANIBIZUMAB
     Indication: NEOVASCULAR AGE-RELATED MACULAR DEGENERATION
     Dosage: PRE-FILLED SYRINGE
     Route: 050
     Dates: start: 20151109
  3. RANIBIZUMAB [Suspect]
     Active Substance: RANIBIZUMAB
     Dosage: 0.5 MG, 1X
     Route: 050
     Dates: start: 20160222, end: 20160222
  4. RANIBIZUMAB [Suspect]
     Active Substance: RANIBIZUMAB
     Dosage: 0.5 MG, 1X
     Route: 050
     Dates: start: 20151207
  5. RANIBIZUMAB [Suspect]
     Active Substance: RANIBIZUMAB
     Dosage: 0.5 MG, 1X
     Route: 050
     Dates: start: 20160104

REACTIONS (1)
  - Detachment of retinal pigment epithelium [Not Recovered/Not Resolved]

NARRATIVE: CASE EVENT DATE: 20160222
